FAERS Safety Report 18460385 (Version 1)
Quarter: 2020Q4

REPORT INFORMATION
  Report Type: Spontaneous
  Country: US (occurrence: US)
  Receive Date: 20201104
  Receipt Date: 20201104
  Transmission Date: 20210114
  Serious: No
  Sender: FDA-Public Use
  Company Number: US-SA-2020SA306566

PATIENT

DRUGS (2)
  1. DUPIXENT [Suspect]
     Active Substance: DUPILUMAB
     Indication: ASTHMA
     Dosage: UNK UNK, 1X (LOADING DOSE)
     Route: 065
     Dates: start: 20200916, end: 20200916
  2. DUPIXENT [Suspect]
     Active Substance: DUPILUMAB
     Indication: RHINITIS ALLERGIC
     Dosage: UNK
     Dates: start: 20200930

REACTIONS (2)
  - Urticaria [Unknown]
  - Off label use [Unknown]

NARRATIVE: CASE EVENT DATE: 20200916
